FAERS Safety Report 13985210 (Version 1)
Quarter: 2017Q3

REPORT INFORMATION
  Report Type: Spontaneous
  Country: PL (occurrence: PL)
  Receive Date: 20170919
  Receipt Date: 20170919
  Transmission Date: 20171128
  Serious: Yes (Other)
  Sender: FDA-Public Use
  Company Number: PL-ASTRAZENECA-2017SE93024

PATIENT
  Age: 92 Year
  Sex: Male

DRUGS (1)
  1. OZIMERTINIB [Suspect]
     Active Substance: OSIMERTINIB
     Route: 048

REACTIONS (4)
  - Thrombocytopenia [Unknown]
  - Conjunctivitis [Unknown]
  - Disease progression [Unknown]
  - Interstitial lung disease [Unknown]
